FAERS Safety Report 6153219-6 (Version None)
Quarter: 2009Q2

REPORT INFORMATION
  Report Type: 
  Country: None (occurrence: None)
  Receive Date: 20090413
  Receipt Date: 20090406
  Transmission Date: 20091009
  Serious: Yes (Hospitalization, Other)
  Sender: FDA-Public Use
  Company Number: PHHY2009BR13277

PATIENT
  Sex: Male

DRUGS (6)
  1. FORASEQ [Suspect]
     Indication: EMPHYSEMA
     Dosage: 1 DF, BID
  2. CORDIL [Concomitant]
     Indication: CARDIAC DISORDER
     Dosage: UNK
  3. ATROVENT [Concomitant]
     Indication: EMPHYSEMA
     Dosage: 20 DRP, TID
  4. BEROTEC [Concomitant]
     Indication: EMPHYSEMA
     Dosage: 3 DRP, TID
  5. PREDNISOLONE [Concomitant]
     Dosage: 20 MG
  6. OXYGEN [Concomitant]
     Dosage: 16 HOUR PER DAY

REACTIONS (6)
  - ANURIA [None]
  - CONDITION AGGRAVATED [None]
  - DYSPNOEA [None]
  - DYSURIA [None]
  - URETHRAL DISORDER [None]
  - URETHRAL OPERATION [None]
